FAERS Safety Report 21699223 (Version 1)
Quarter: 2022Q4

REPORT INFORMATION
  Report Type: Spontaneous
  Country: US (occurrence: None)
  Receive Date: 20221207
  Receipt Date: 20221207
  Transmission Date: 20230113
  Serious: Yes (Life-Threatening, Disabling, Other)
  Sender: FDA-Public Use
  Company Number: None

PATIENT
  Age: 65 Year
  Sex: Male
  Weight: 67.05 kg

DRUGS (3)
  1. NP THYROID [Suspect]
     Active Substance: LEVOTHYROXINE\LIOTHYRONINE
     Indication: Hypothyroidism
     Route: 048
     Dates: start: 20201103, end: 20221103
  2. ASPIRIN [Concomitant]
     Active Substance: ASPIRIN
  3. VITAMIN D [Concomitant]
     Active Substance: VITAMIN D NOS

REACTIONS (10)
  - Dizziness [None]
  - Anxiety [None]
  - Insomnia [None]
  - Heart rate increased [None]
  - Sensory disturbance [None]
  - Alopecia [None]
  - Weight decreased [None]
  - Palpitations [None]
  - Fatigue [None]
  - Body temperature fluctuation [None]

NARRATIVE: CASE EVENT DATE: 20201103
